FAERS Safety Report 6048417-6 (Version None)
Quarter: 2009Q1

REPORT INFORMATION
  Report Type: 
  Country: None (occurrence: None)
  Receive Date: 20090123
  Receipt Date: 20090116
  Transmission Date: 20090719
  Serious: Yes (Hospitalization)
  Sender: FDA-Public Use
  Company Number: A0764565A

PATIENT
  Age: 62 Year
  Sex: Male
  Weight: 101.8 kg

DRUGS (2)
  1. AVANDIA [Suspect]
     Route: 048
     Dates: start: 20010101, end: 20070706
  2. INSULIN [Concomitant]

REACTIONS (1)
  - ATRIAL FIBRILLATION [None]
